FAERS Safety Report 5124789-1 (Version None)
Quarter: 2006Q4

REPORT INFORMATION
  Report Type: 
  Country: None (occurrence: None)
  Receive Date: 20061011
  Receipt Date: 20061004
  Transmission Date: 20070319
  Serious: Yes (Other)
  Sender: FDA-Public Use
  Company Number: 2006AP04611

PATIENT
  Age: 41 Year
  Sex: Male

DRUGS (2)
  1. SEROQUEL [Suspect]
     Indication: SCHIZOPHRENIA
     Dosage: DOSE TITRATED TO 1200MG
     Route: 048
     Dates: start: 20060801
  2. SEROQUEL [Suspect]
     Indication: PARANOIA
     Dosage: DOSE TITRATED TO 1200MG
     Route: 048
     Dates: start: 20060801

REACTIONS (8)
  - CONVULSION [None]
  - DRUG INEFFECTIVE [None]
  - DYSPHAGIA [None]
  - HEART RATE DECREASED [None]
  - HYPOAESTHESIA [None]
  - NECK PAIN [None]
  - PAIN [None]
  - PANIC ATTACK [None]
